FAERS Safety Report 6542605-8 (Version None)
Quarter: 2010Q1

REPORT INFORMATION
  Report Type: 
  Country: None (occurrence: None)
  Receive Date: 20100119
  Receipt Date: 20100104
  Transmission Date: 20100710
  Serious: Yes (Hospitalization, Other)
  Sender: FDA-Public Use
  Company Number: TW-WATSON-2010-00520

PATIENT

DRUGS (3)
  1. FLUOROURACIL [Suspect]
     Indication: BILE DUCT CANCER
  2. GEMCITABINE [Suspect]
     Indication: BILE DUCT CANCER
  3. LEUCOVORIN CALCIUM [Suspect]
     Indication: BILE DUCT CANCER

REACTIONS (2)
  - RADIATION PNEUMONITIS [None]
  - RECALL PHENOMENON [None]
